FAERS Safety Report 10707401 (Version 3)
Quarter: 2015Q1

REPORT INFORMATION
  Report Type: Report from Study
  Country: FR (occurrence: FR)
  Receive Date: 20150113
  Receipt Date: 20150203
  Transmission Date: 20150721
  Serious: Yes (Hospitalization, Other)
  Sender: FDA-Public Use
  Company Number: FR-CELGENE-FRA-2014104341

PATIENT
  Age: 63 Year
  Sex: Male

DRUGS (6)
  1. PIPERACILLIN [Concomitant]
     Active Substance: PIPERACILLIN
     Indication: LIVER ABSCESS
     Route: 065
  2. ABRAXANE [Suspect]
     Active Substance: PACLITAXEL
     Indication: PANCREATIC CARCINOMA METASTATIC
     Route: 065
     Dates: start: 20140808
  3. 5-FLUOROURACIL [Suspect]
     Active Substance: FLUOROURACIL
     Dosage: CONTINOUS
     Route: 065
     Dates: start: 20140808
  4. FOLINIC ACID [Suspect]
     Active Substance: LEUCOVORIN
     Indication: PANCREATIC CARCINOMA METASTATIC
     Route: 065
     Dates: start: 20140808
  5. METRONIDAZOLE. [Concomitant]
     Active Substance: METRONIDAZOLE
     Indication: LIVER ABSCESS
     Route: 065
  6. 5-FLUOROURACIL [Suspect]
     Active Substance: FLUOROURACIL
     Indication: PANCREATIC CARCINOMA METASTATIC
     Dosage: BOLUS
     Route: 065
     Dates: start: 20140808

REACTIONS (6)
  - Asthenia [Recovered/Resolved]
  - Diarrhoea infectious [Recovered/Resolved]
  - Nausea [Recovered/Resolved]
  - Liver abscess [Not Recovered/Not Resolved]
  - Anaemia [Not Recovered/Not Resolved]
  - Abdominal pain [Recovered/Resolved]

NARRATIVE: CASE EVENT DATE: 20140915
